FAERS Safety Report 6702224-7 (Version None)
Quarter: 2010Q2

REPORT INFORMATION
  Report Type: 
  Country: None (occurrence: None)
  Receive Date: 20100429
  Receipt Date: 20100416
  Transmission Date: 20101027
  Serious: No
  Sender: FDA-Public Use
  Company Number: US-BAYER-201019608NA

PATIENT
  Sex: Female

DRUGS (1)
  1. MAGNEVIST [Suspect]
     Indication: NUCLEAR MAGNETIC RESONANCE IMAGING
     Dates: start: 20080401, end: 20080401

REACTIONS (10)
  - ARTHROPATHY [None]
  - BONE DISORDER [None]
  - BURNING SENSATION [None]
  - EYE IRRITATION [None]
  - FACIAL PAIN [None]
  - IRRITABILITY [None]
  - NECK DEFORMITY [None]
  - SKIN DISCOLOURATION [None]
  - SKIN DISORDER [None]
  - VASODILATATION [None]
